FAERS Safety Report 8833003 (Version 4)
Quarter: 2012Q4

REPORT INFORMATION
  Report Type: 
  Country: US (occurrence: US)
  Receive Date: 20121010
  Receipt Date: 20121220
  Transmission Date: 20130627
  Serious: Yes (Other)
  Sender: FDA-Public Use
  Company Number: US-PFIZER INC-2012250685

PATIENT
  Age: 49 Year
  Sex: Female
  Weight: 93.42 kg

DRUGS (5)
  1. EFFEXOR XR [Suspect]
     Indication: MAJOR DEPRESSION
     Dosage: 150 mg, daily in the morning
     Route: 048
  2. EFFEXOR XR [Suspect]
     Indication: GENERALIZED ANXIETY DISORDER
  3. LYRICA [Suspect]
     Indication: NERVE PAIN
     Dosage: 75 mg, 2x/day
     Route: 048
     Dates: start: 201101
  4. LYRICA [Suspect]
     Indication: NEUROPATHY
     Dosage: 75 mg, 3x/day
     Route: 048
  5. METFORMIN [Concomitant]
     Indication: PREDIABETES
     Dosage: 500 mg, 2x/day

REACTIONS (3)
  - Tendon sheath incision [Unknown]
  - Tooth infection [Unknown]
  - Pain [Unknown]
